FAERS Safety Report 17141795 (Version 2)
Quarter: 2020Q1

REPORT INFORMATION
  Report Type: Spontaneous
  Country: US (occurrence: US)
  Receive Date: 20191211
  Receipt Date: 20200122
  Transmission Date: 20200409
  Serious: No
  Sender: FDA-Public Use
  Company Number: US-GW PHARMA-201912USGW4521

PATIENT

DRUGS (7)
  1. EPIDIOLEX [Suspect]
     Active Substance: CANNABIDIOL
     Indication: LENNOX-GASTAUT SYNDROME
     Dosage: 9.5 MG/KG/DAY, 250 MILLIGRAM, BID
     Route: 048
     Dates: start: 201903, end: 20191204
  2. EPIDIOLEX [Interacting]
     Active Substance: CANNABIDIOL
     Dosage: 3.8 MG/KG/DAY, 100 MILLIGRAM, BID
     Route: 048
     Dates: start: 20191205
  3. VALPROIC ACID. [Interacting]
     Active Substance: VALPROIC ACID
     Dosage: 24 MG/KG/DAY, STOP DATE: 08 NOV 2019
     Route: 065
     Dates: start: 20190730
  4. ZONISAMIDE. [Concomitant]
     Active Substance: ZONISAMIDE
     Indication: EPILEPSY
     Dosage: UNK
     Route: 065
  5. VALPROIC ACID. [Interacting]
     Active Substance: VALPROIC ACID
     Indication: EPILEPSY
     Dosage: 27 MG/KG/DAY, STOP DATE: 30 JUL 2019
     Route: 065
  6. VALPROIC ACID. [Interacting]
     Active Substance: VALPROIC ACID
     Dosage: 18 MG/KG/DAY
     Route: 065
     Dates: start: 20191108
  7. CLONAZEPAM. [Concomitant]
     Active Substance: CLONAZEPAM
     Indication: EPILEPSY
     Dosage: UNK
     Route: 065

REACTIONS (10)
  - Drug interaction [Recovered/Resolved]
  - Anticonvulsant drug level increased [Recovered/Resolved]
  - Lethargy [Recovered/Resolved]
  - Ataxia [Recovered/Resolved]
  - Fatigue [Recovered/Resolved]
  - Decreased appetite [Recovered/Resolved]
  - Ammonia increased [Recovered/Resolved]
  - Aspartate aminotransferase increased [Unknown]
  - Somnolence [Recovered/Resolved]
  - Drooling [Recovered/Resolved]

NARRATIVE: CASE EVENT DATE: 2019
